FAERS Safety Report 8888450 (Version 5)
Quarter: 2013Q2

REPORT INFORMATION
  Report Type: Report from Study
  Country: CL (occurrence: CL)
  Receive Date: 20121106
  Receipt Date: 20130425
  Transmission Date: 20140414
  Serious: Yes (Hospitalization, Disabling, Other)
  Sender: FDA-Public Use
  Company Number: PHHY2012CL093264

PATIENT
  Sex: Female

DRUGS (4)
  1. LEPONEX [Suspect]
     Indication: BIPOLAR I DISORDER
     Dosage: 175 MG, DAILY
     Dates: start: 20120726
  2. LEPONEX [Suspect]
     Indication: OFF LABEL USE
     Dosage: 25 MG, DAILY
     Route: 048
     Dates: start: 20120730
  3. RISPERIDONE [Concomitant]
     Dosage: 0.5 MG, UNK
  4. RAVOTRIL [Concomitant]
     Dosage: UNK UKN, UNK

REACTIONS (8)
  - Femoral neck fracture [Not Recovered/Not Resolved]
  - Fall [Not Recovered/Not Resolved]
  - Ligament sprain [Not Recovered/Not Resolved]
  - Foot fracture [Not Recovered/Not Resolved]
  - Pain [Not Recovered/Not Resolved]
  - Accident [Not Recovered/Not Resolved]
  - Mobility decreased [Recovering/Resolving]
  - Sleep disorder [Unknown]
